FAERS Safety Report 5206505-8 (Version None)
Quarter: 2006Q4

REPORT INFORMATION
  Report Type: 
  Country: None (occurrence: None)
  Receive Date: 20061026
  Receipt Date: 20060708
  Transmission Date: 20070319
  Serious: No
  Sender: FDA-Public Use
  Company Number: 2006076477

PATIENT
  Age: 69 Year
  Sex: Female

DRUGS (3)
  1. LYRICA [Suspect]
     Indication: PAIN
     Dosage: 100 MG (50 MG, 2 IN 1 D), ORAL
     Route: 048
     Dates: start: 20060612
  2. ASACOL [Concomitant]
  3. MULTI-VITAMINS [Concomitant]

REACTIONS (1)
  - MUSCULOSKELETAL STIFFNESS [None]
